FAERS Safety Report 5707873-0 (Version None)
Quarter: 2008Q2

REPORT INFORMATION
  Report Type: 
  Country: None (occurrence: None)
  Receive Date: 20080417
  Receipt Date: 20080417
  Transmission Date: 20081010
  Serious: Yes (Hospitalization)
  Sender: FDA-Public Use
  Company Number: None

PATIENT
  Sex: Male
  Weight: 65.7 kg

DRUGS (2)
  1. HEPARIN SODIUM [Suspect]
     Dosage: 5,000 UNITS Q8HRS SC
     Route: 058
     Dates: start: 20070402, end: 20080407
  2. HEPARIN SODIUM [Suspect]
     Dosage: 5,000 UNITS PER DALYSIS  IV
     Route: 042

REACTIONS (1)
  - PLATELET COUNT DECREASED [None]
